FAERS Safety Report 9014823 (Version 5)
Quarter: 2013Q2

REPORT INFORMATION
  Report Type: Spontaneous
  Country: JP (occurrence: JP)
  Receive Date: 20130116
  Receipt Date: 20130419
  Transmission Date: 20140414
  Serious: Yes (Hospitalization, Other)
  Sender: FDA-Public Use
  Company Number: JP-009507513-1301JPN005388

PATIENT
  Age: 63 Year
  Sex: Male
  Weight: 79 kg

DRUGS (15)
  1. DEXAMETHASONE [Suspect]
     Indication: PLASMA CELL MYELOMA
     Dosage: 40 MG, QD
     Route: 048
     Dates: start: 20101118, end: 20101121
  2. DEXAMETHASONE [Suspect]
     Indication: PLASMA CELL MYELOMA
     Dosage: DAILY DOSE: 10 MG
  3. REVLIMID [Suspect]
     Indication: PLASMA CELL MYELOMA
     Dosage: 10 MG, QD
     Route: 048
     Dates: start: 20101118, end: 20101121
  4. ITRACONAZOLE [Suspect]
     Indication: ANTIFUNGAL PROPHYLAXIS
     Dosage: 100 MG, QD
     Route: 048
     Dates: start: 20101118, end: 20101121
  5. LENALIDOMIDE [Concomitant]
     Dosage: DAILY DOSE: 10 MG
     Route: 048
  6. BORTEZOMIB [Concomitant]
  7. SILECE [Concomitant]
     Dosage: 1 MG, QD
     Route: 048
  8. DEPAS [Concomitant]
     Dosage: 0.5 MG, QD
     Route: 048
  9. ZYLORIC [Concomitant]
     Dosage: 200 MG, QD
     Route: 048
     Dates: start: 20101122
  10. BAKTAR [Concomitant]
     Dosage: 1 DF, QD
     Route: 048
     Dates: start: 20101118, end: 20101122
  11. BAYASPIRIN [Concomitant]
     Dosage: 100 MG, QD
     Route: 048
     Dates: start: 20101118, end: 20101122
  12. TAKEPRON [Concomitant]
     Dosage: 15 MG, QD
     Route: 048
  13. FLUITRAN [Concomitant]
     Dosage: 1 MG, QD
     Route: 048
  14. AMLODIN (AMLODIPINE BESYLATE) [Concomitant]
     Dosage: 5 MG, QD
     Route: 048
  15. DIOVAN [Concomitant]
     Dosage: 80 MG, QD
     Route: 048

REACTIONS (3)
  - Renal impairment [Recovering/Resolving]
  - Hyperglycaemia [Recovering/Resolving]
  - Hyperuricaemia [Recovering/Resolving]
